FAERS Safety Report 12218980 (Version 1)
Quarter: 2016Q1

REPORT INFORMATION
  Report Type: Other
  Country: IN (occurrence: IN)
  Receive Date: 20160329
  Receipt Date: 20160329
  Transmission Date: 20160526
  Serious: Yes (Death)
  Sender: FDA-Public Use
  Company Number: IN-B. BRAUN MEDICAL INC.-1049899

PATIENT
  Age: 53 Year
  Sex: Female

DRUGS (5)
  1. 3% AND 5% SODIUM CHLORIDE INJECTIONS USP 0264-7805-10 [Suspect]
     Active Substance: SODIUM CHLORIDE
     Route: 041
  2. POTASSIUM CHLORIDE. [Concomitant]
     Active Substance: POTASSIUM CHLORIDE
     Route: 042
  3. SALT [Suspect]
     Active Substance: SODIUM CHLORIDE
     Route: 048
  4. 3% SODIUM CHLORIDE [Suspect]
     Active Substance: SODIUM CHLORIDE
     Route: 042
  5. ORAL POTASSIUM [Concomitant]
     Route: 048

REACTIONS (1)
  - Osmotic demyelination syndrome [None]
